FAERS Safety Report 5578187-7 (Version None)
Quarter: 2007Q4

REPORT INFORMATION
  Report Type: 
  Country: None (occurrence: None)
  Receive Date: 20071227
  Receipt Date: 20071211
  Transmission Date: 20080405
  Serious: Yes (Hospitalization)
  Sender: FDA-Public Use
  Company Number: 2007BM000197

PATIENT
  Age: 40 Year
  Sex: Male

DRUGS (4)
  1. PREDNISONE [Suspect]
     Indication: JUVENILE ARTHRITIS
     Dosage: 2 MG/KG;, 15 MG; QD;
     Dates: start: 19990101, end: 20020101
  2. PREDNISONE [Suspect]
     Indication: JUVENILE ARTHRITIS
     Dosage: 2 MG/KG;, 15 MG; QD;
     Dates: start: 20020101, end: 20041101
  3. PREDNISONE [Suspect]
     Indication: JUVENILE ARTHRITIS
     Dosage: 2 MG/KG;, 15 MG; QD;
     Dates: start: 20041101
  4. ORAPRED [Suspect]

REACTIONS (15)
  - ABDOMINAL PAIN [None]
  - ARTHRALGIA [None]
  - ASCITES [None]
  - DERMATITIS EXFOLIATIVE [None]
  - DISSEMINATED INTRAVASCULAR COAGULATION [None]
  - DRUG INEFFECTIVE [None]
  - DYSPNOEA [None]
  - FIBRIN D DIMER INCREASED [None]
  - HAEMOLYSIS [None]
  - INFECTION [None]
  - LUNG INFILTRATION [None]
  - MEGACOLON [None]
  - RASH GENERALISED [None]
  - SPLENOMEGALY [None]
  - THROMBOCYTOPENIA [None]
